FAERS Safety Report 5295960-3 (Version None)
Quarter: 2007Q2

REPORT INFORMATION
  Report Type: 
  Country: None (occurrence: None)
  Receive Date: 20070413
  Receipt Date: 20070330
  Transmission Date: 20071010
  Serious: Yes (Life-Threatening)
  Sender: FDA-Public Use
  Company Number: FR-JNJFOC-20070400553

PATIENT
  Age: 74 Year
  Sex: Female
  Weight: 42 kg

DRUGS (6)
  1. REMICADE [Suspect]
     Indication: RHEUMATOID ARTHRITIS
     Route: 042
  2. CORDARONE [Concomitant]
     Indication: CARDIAC DISORDER
  3. NEXIUM [Concomitant]
     Indication: ULCER
  4. ACTONEL [Concomitant]
     Indication: OSTEOPOROSIS
  5. LEVOTHYROXINE SODIUM [Concomitant]
     Indication: HYPOTHYROIDISM
  6. NOVATREX [Concomitant]
     Indication: POLYARTHRITIS

REACTIONS (2)
  - ADAMS-STOKES SYNDROME [None]
  - BRADYCARDIA [None]
